FAERS Safety Report 8488003-1 (Version None)
Quarter: 2012Q3

REPORT INFORMATION
  Report Type: 
  Country: None (occurrence: None)
  Receive Date: 20120705
  Receipt Date: 20120628
  Transmission Date: 20120928
  Serious: Yes (Other)
  Sender: FDA-Public Use
  Company Number: UY-PFIZER INC-2012154517

PATIENT
  Age: 46 Year
  Sex: Female

DRUGS (2)
  1. T4 [Concomitant]
     Dosage: 50 UG, 1X/DAY
  2. SUNITINIB MALATE [Suspect]
     Dosage: 50 MG, (FREQUENCY UNSPECIFIED)
     Dates: start: 20100115

REACTIONS (2)
  - HYPERCHOLESTEROLAEMIA [None]
  - HYPERTRIGLYCERIDAEMIA [None]
